FAERS Safety Report 24652453 (Version 1)
Quarter: 2024Q4

REPORT INFORMATION
  Report Type: Spontaneous
  Country: IT (occurrence: IT)
  Receive Date: 20241122
  Receipt Date: 20241122
  Transmission Date: 20250115
  Serious: Yes (Other)
  Sender: PERRIGO
  Company Number: None

PATIENT
  Age: 34 Year
  Sex: Female
  Weight: 46 kg

DRUGS (1)
  1. ULIPRISTAL ACETATE [Suspect]
     Active Substance: ULIPRISTAL ACETATE
     Indication: Post coital contraception
     Dosage: 1 CPR
     Route: 048
     Dates: start: 20240625, end: 20240626

REACTIONS (8)
  - Asthenia [Recovered/Resolved with Sequelae]
  - Headache [Recovered/Resolved with Sequelae]
  - Depression [Recovered/Resolved with Sequelae]
  - Mood swings [Recovered/Resolved with Sequelae]
  - Nausea [Recovered/Resolved]
  - Muscle spasms [Recovered/Resolved]
  - Suicidal ideation [Recovered/Resolved with Sequelae]
  - Panic attack [Recovered/Resolved]

NARRATIVE: CASE EVENT DATE: 20240702
